FAERS Safety Report 13124706 (Version 1)
Quarter: 2017Q1

REPORT INFORMATION
  Report Type: Spontaneous
  Country: FR (occurrence: FR)
  Receive Date: 20170118
  Receipt Date: 20170118
  Transmission Date: 20170428
  Serious: Yes (Hospitalization)
  Sender: FDA-Public Use
  Company Number: FR-ROCHE-1881157

PATIENT
  Age: 46 Year
  Sex: Male

DRUGS (5)
  1. VALIUM [Concomitant]
     Active Substance: DIAZEPAM
  2. RIVOTRIL [Suspect]
     Active Substance: CLONAZEPAM
     Indication: PRODUCT USED FOR UNKNOWN INDICATION
     Dosage: 1MG/1ML, SOLUTION FOR INJECTION IN AMPOULES
     Route: 042
     Dates: start: 20161016, end: 20161016
  3. PAROXETINE. [Concomitant]
     Active Substance: PAROXETINE
  4. TIAPRIDE [Concomitant]
     Active Substance: TIAPRIDE
  5. BACLOFENE [Concomitant]
     Active Substance: BACLOFEN

REACTIONS (2)
  - Coma scale abnormal [Recovered/Resolved]
  - Somnolence [Recovered/Resolved]

NARRATIVE: CASE EVENT DATE: 20161016
